FAERS Safety Report 16311147 (Version 2)
Quarter: 2020Q1

REPORT INFORMATION
  Report Type: Spontaneous
  Country: US (occurrence: US)
  Receive Date: 20190514
  Receipt Date: 20200217
  Transmission Date: 20200409
  Serious: Yes (Other)
  Sender: FDA-Public Use
  Company Number: US-ASTRAZENECA-2019SE67664

PATIENT
  Sex: Female
  Weight: 85.3 kg

DRUGS (20)
  1. AZITHROMYCIN ANHYDROUS. [Concomitant]
     Active Substance: AZITHROMYCIN ANHYDROUS
     Indication: ANTIBIOTIC THERAPY
     Dates: start: 2007, end: 2016
  2. PREVACID [Suspect]
     Active Substance: LANSOPRAZOLE
     Indication: GASTROOESOPHAGEAL REFLUX DISEASE
     Dosage: GENERIC LANSOPRAZOLE
     Route: 065
     Dates: start: 2009
  3. NITROFURANTOIN MONOHYDRATE MACROCRYSTALS [Concomitant]
     Active Substance: NITROFURANTOIN\NITROFURANTOIN MONOHYDRATE
     Indication: ANTIBIOTIC THERAPY
     Dates: start: 2008, end: 2016
  4. SYNTHROID [Concomitant]
     Active Substance: LEVOTHYROXINE SODIUM
     Indication: HYPOTHYROIDISM
     Dates: start: 2007, end: 2017
  5. PATANOL [Concomitant]
     Active Substance: OLOPATADINE HYDROCHLORIDE
     Indication: ANTIALLERGIC THERAPY
     Dates: start: 2014, end: 2017
  6. DEXILANT [Suspect]
     Active Substance: DEXLANSOPRAZOLE
     Route: 065
  7. DESOXIMETASONE. [Concomitant]
     Active Substance: DESOXIMETASONE
     Indication: STEROID THERAPY
     Dates: start: 2015, end: 2016
  8. VALIUM [Concomitant]
     Active Substance: DIAZEPAM
     Indication: MENTAL DISORDER
     Dosage: GENERIC
     Route: 065
     Dates: start: 2012, end: 2013
  9. ZANTAC [Concomitant]
     Active Substance: RANITIDINE HYDROCHLORIDE
     Dosage: GENERIC
     Route: 065
     Dates: start: 2016, end: 2017
  10. SYNTHROID [Concomitant]
     Active Substance: LEVOTHYROXINE SODIUM
     Indication: HYPOTHYROIDISM
     Dosage: GENERIC
     Dates: start: 2016
  11. VALIUM [Concomitant]
     Active Substance: DIAZEPAM
     Indication: MENTAL DISORDER
     Dates: start: 2007, end: 2012
  12. TAGAMET HB [Concomitant]
     Active Substance: CIMETIDINE
     Dosage: TAGAMET HB (OTC)
  13. ZANTAC [Concomitant]
     Active Substance: RANITIDINE HYDROCHLORIDE
     Dosage: ZANTAC 150 (OTC)
  14. PREVACID [Suspect]
     Active Substance: LANSOPRAZOLE
     Indication: GASTROOESOPHAGEAL REFLUX DISEASE
     Route: 065
     Dates: start: 200707, end: 201605
  15. NEXIUM [Suspect]
     Active Substance: ESOMEPRAZOLE MAGNESIUM
     Indication: GASTROOESOPHAGEAL REFLUX DISEASE
     Route: 048
     Dates: start: 200707, end: 201605
  16. DIVON HCT [Concomitant]
     Indication: BLOOD PRESSURE MEASUREMENT
     Dates: start: 2011, end: 2017
  17. CEPHALEXIN. [Concomitant]
     Active Substance: CEPHALEXIN
     Indication: ANTIBIOTIC THERAPY
     Dates: start: 2007, end: 2016
  18. PEPCID AC [Concomitant]
     Active Substance: FAMOTIDINE
     Dosage: PEPCID AC (OTC)
  19. NEXIUM [Suspect]
     Active Substance: ESOMEPRAZOLE MAGNESIUM
     Indication: GASTROOESOPHAGEAL REFLUX DISEASE
     Route: 048
     Dates: start: 2010, end: 2016
  20. PREVACID [Suspect]
     Active Substance: LANSOPRAZOLE
     Indication: GASTROOESOPHAGEAL REFLUX DISEASE
     Route: 065
     Dates: start: 2007, end: 2009

REACTIONS (1)
  - Chronic kidney disease [Not Recovered/Not Resolved]
